FAERS Safety Report 25723076 (Version 1)
Quarter: 2025Q3

REPORT INFORMATION
  Report Type: Spontaneous
  Country: US (occurrence: US)
  Receive Date: 20250825
  Receipt Date: 20250825
  Transmission Date: 20251021
  Serious: Yes (Death, Hospitalization)
  Sender: AMGEN
  Company Number: US-AMGEN-USASP2025164009

PATIENT

DRUGS (1)
  1. PREDNISONE [Suspect]
     Active Substance: PREDNISONE
     Indication: Product used for unknown indication
     Route: 065

REACTIONS (15)
  - Death [Fatal]
  - Bacterial infection [Unknown]
  - Pneumonia [Unknown]
  - Sepsis [Unknown]
  - COVID-19 [Unknown]
  - Bronchitis [Unknown]
  - Influenza [Unknown]
  - Fungal infection [Unknown]
  - Urinary tract infection [Unknown]
  - Viral infection [Unknown]
  - Clostridium test positive [Unknown]
  - Human polyomavirus infection [Unknown]
  - Cytomegalovirus infection [Unknown]
  - Epstein-Barr virus infection [Unknown]
  - Respiratory tract infection viral [Unknown]
